FAERS Safety Report 18905881 (Version 1)
Quarter: 2021Q1

REPORT INFORMATION
  Report Type: Spontaneous
  Country: US (occurrence: US)
  Receive Date: 20210217
  Receipt Date: 20210217
  Transmission Date: 20210420
  Serious: No
  Sender: FDA-Public Use
  Company Number: US-OTSUKA-2020_018853

PATIENT
  Age: 17 Year
  Sex: Female

DRUGS (11)
  1. CARBOPLATIN. [Concomitant]
     Active Substance: CARBOPLATIN
     Indication: B-CELL LYMPHOMA
     Dosage: UNK
     Route: 065
  2. BUSULFAN. [Suspect]
     Active Substance: BUSULFAN
     Indication: B-CELL LYMPHOMA
     Dosage: UNK (HIGH?DOSE)
     Route: 065
  3. RITUXIMAB. [Concomitant]
     Active Substance: RITUXIMAB
     Indication: B-CELL LYMPHOMA
     Dosage: UNK (HIGH DOSE)
     Route: 065
  4. VORINOSTAT [Concomitant]
     Active Substance: VORINOSTAT
     Indication: B-CELL LYMPHOMA
     Dosage: UNK (HIGH DOSE)
     Route: 065
  5. FLUDARABINE [Concomitant]
     Active Substance: FLUDARABINE PHOSPHATE
     Indication: B-CELL LYMPHOMA
     Dosage: UNK
     Route: 065
  6. GEMCITABINE. [Concomitant]
     Active Substance: GEMCITABINE
     Indication: B-CELL LYMPHOMA
     Dosage: UNK (HIGH DOSE)
     Route: 065
  7. MELPHALAN. [Concomitant]
     Active Substance: MELPHALAN
     Indication: B-CELL LYMPHOMA
     Dosage: UNK (HIGH DOSE)
     Route: 065
  8. IFOSFAMIDE. [Concomitant]
     Active Substance: IFOSFAMIDE
     Indication: B-CELL LYMPHOMA
     Dosage: UNK
     Route: 065
  9. TOCILIZUMAB. [Concomitant]
     Active Substance: TOCILIZUMAB
     Indication: B-CELL LYMPHOMA
     Dosage: UNK
     Route: 065
  10. DEXAMETHASONE. [Concomitant]
     Active Substance: DEXAMETHASONE
     Indication: B-CELL LYMPHOMA
     Dosage: UNK
     Route: 065
  11. PEMBROLIZUMAB. [Concomitant]
     Active Substance: PEMBROLIZUMAB
     Indication: B-CELL LYMPHOMA
     Dosage: UNK
     Route: 065

REACTIONS (1)
  - Product use in unapproved indication [Unknown]
